FAERS Safety Report 10560413 (Version 1)
Quarter: 2014Q4

REPORT INFORMATION
  Report Type: Spontaneous
  Country: IT (occurrence: IT)
  Receive Date: 20141103
  Receipt Date: 20141103
  Transmission Date: 20150529
  Serious: Yes (Death)
  Sender: FDA-Public Use
  Company Number: IT-BAYER-2014-157609

PATIENT
  Age: 86 Year
  Sex: Male

DRUGS (7)
  1. CARDIOASPIRIN [Suspect]
     Active Substance: ASPIRIN
     Indication: PROPHYLAXIS
     Dosage: DAILY DOSE 100 MG
     Route: 048
  2. LANOXIN [Concomitant]
     Active Substance: DIGOXIN
  3. LASIX [Concomitant]
     Active Substance: FUROSEMIDE
  4. APLACTIN [Concomitant]
     Active Substance: PRAVASTATIN SODIUM
  5. CARDICOR [Concomitant]
     Active Substance: BISOPROLOL
  6. ZAROXOLYN [Concomitant]
     Active Substance: METOLAZONE
  7. LANSOX [Concomitant]
     Active Substance: LANSOPRAZOLE

REACTIONS (1)
  - Rectal haemorrhage [Fatal]

NARRATIVE: CASE EVENT DATE: 20130617
